FAERS Safety Report 22353508 (Version 2)
Quarter: 2024Q4

REPORT INFORMATION
  Report Type: Report from Study
  Country: BR (occurrence: BR)
  Receive Date: 20230523
  Receipt Date: 20241114
  Transmission Date: 20250114
  Serious: Yes (Death, Other)
  Sender: CELLTRION
  Company Number: BR-CELLTRION INC.-2023BR010562

PATIENT

DRUGS (1)
  1. INFLIXIMAB-DYYB [Suspect]
     Active Substance: INFLIXIMAB-DYYB
     Indication: Crohn^s disease
     Dosage: UNK
     Route: 042
     Dates: start: 20220811

REACTIONS (1)
  - Metastases to abdominal cavity [Fatal]
